FAERS Safety Report 6760227-0 (Version None)
Quarter: 2010Q2

REPORT INFORMATION
  Report Type: 
  Country: None (occurrence: None)
  Receive Date: 20100608
  Receipt Date: 20001012
  Transmission Date: 20101027
  Serious: No
  Sender: FDA-Public Use
  Company Number: 2000SUS0798

PATIENT
  Age: 31 Year
  Sex: Female

DRUGS (2)
  1. SUSTIVA [Suspect]
     Indication: HIV INFECTION
     Dosage: UNK UNK
     Route: 048
     Dates: start: 19980101
  2. COMBIVIR [Concomitant]
     Dosage: 1 TAB AES#DOSE_FREQUENCY: BID
     Route: 048

REACTIONS (4)
  - DRUG SCREEN POSITIVE [None]
  - LABORATORY TEST ABNORMAL [None]
  - LIVE BIRTH [None]
  - PREGNANCY [None]
